FAERS Safety Report 18795587 (Version 12)
Quarter: 2022Q4

REPORT INFORMATION
  Report Type: Spontaneous
  Country: CA (occurrence: CA)
  Receive Date: 20210127
  Receipt Date: 20221101
  Transmission Date: 20230112
  Serious: Yes (Hospitalization, Other)
  Sender: FDA-Public Use
  Company Number: CA-GLAXOSMITHKLINE-CA2021AMR013313

PATIENT

DRUGS (116)
  1. ROBAXISAL [Suspect]
     Active Substance: ASPIRIN\METHOCARBAMOL
     Indication: Child abuse
     Dosage: 400 MG, BID
     Route: 048
  2. ROBAXISAL [Suspect]
     Active Substance: ASPIRIN\METHOCARBAMOL
     Dosage: 500 MG, BID
     Route: 048
  3. ASCORBIC ACID [Suspect]
     Active Substance: ASCORBIC ACID
     Indication: Child abuse
     Dosage: 1500 MG, QD
     Route: 048
  4. CHOLECALCIFEROL [Suspect]
     Active Substance: CHOLECALCIFEROL
     Indication: Vitamin supplementation
     Dosage: 2000 IU, QD
     Route: 048
  5. CHOLECALCIFEROL [Suspect]
     Active Substance: CHOLECALCIFEROL
     Indication: Child abuse
     Dosage: 200 IU, QD
     Route: 048
  6. CHOLECALCIFEROL [Suspect]
     Active Substance: CHOLECALCIFEROL
     Dosage: QD
     Route: 048
  7. PANTOPRAZOLE [Suspect]
     Active Substance: PANTOPRAZOLE
     Indication: Child abuse
     Dosage: 40 MG, QD
     Route: 048
  8. DIPHENHYDRAMINE [Suspect]
     Active Substance: DIPHENHYDRAMINE
     Indication: Pruritus
     Dosage: 12.5 MG, QID, 1 EVERY 6 HOURS
     Route: 048
  9. DIPHENHYDRAMINE [Suspect]
     Active Substance: DIPHENHYDRAMINE
     Indication: Child abuse
     Dosage: 50 MG, QD
     Route: 048
  10. METHOCARBAMOL [Suspect]
     Active Substance: METHOCARBAMOL
     Indication: Child abuse
     Dosage: 2 DF, QD
     Route: 048
  11. METHOCARBAMOL [Suspect]
     Active Substance: METHOCARBAMOL
     Dosage: 400 MG, BID
     Route: 048
  12. DOCONEXENT [Suspect]
     Active Substance: DOCONEXENT
     Indication: Product used for unknown indication
     Dosage: UNK
  13. ROBAXACET [Suspect]
     Active Substance: ACETAMINOPHEN\METHOCARBAMOL
     Indication: Back pain
     Dosage: 900 MG, QD
     Route: 048
  14. DIMENHYDRINATE [Suspect]
     Active Substance: DIMENHYDRINATE
     Indication: Constipation
     Dosage: 25 MG, QD
     Route: 048
  15. DIMENHYDRINATE [Suspect]
     Active Substance: DIMENHYDRINATE
     Indication: Child abuse
     Dosage: 25 MG, AS REQUIRED
     Route: 048
  16. DIMENHYDRINATE [Suspect]
     Active Substance: DIMENHYDRINATE
     Indication: Pruritus
     Dosage: 12.5 MG, QID
     Route: 048
  17. DIMENHYDRINATE [Suspect]
     Active Substance: DIMENHYDRINATE
     Dosage: 25 MG
     Route: 048
  18. DIMENHYDRINATE [Suspect]
     Active Substance: DIMENHYDRINATE
     Dosage: UNK
  19. DIMENHYDRINATE [Suspect]
     Active Substance: DIMENHYDRINATE
     Dosage: 20 MG, QD
  20. FLUTICASONE FUROATE [Suspect]
     Active Substance: FLUTICASONE FUROATE
     Indication: Child abuse
     Dosage: 2 DF
     Route: 055
  21. FLUTICASONE FUROATE [Suspect]
     Active Substance: FLUTICASONE FUROATE
     Dosage: 1 DF, QD
     Route: 055
  22. FLUTICASONE PROPIONATE [Suspect]
     Active Substance: FLUTICASONE PROPIONATE
     Indication: Product used for unknown indication
     Dosage: UNK
  23. ALBUTEROL SULFATE [Suspect]
     Active Substance: ALBUTEROL SULFATE
     Indication: Child abuse
     Dosage: 100 UG,  1 EVERY 4 HOURS
     Route: 055
  24. ALBUTEROL SULFATE [Suspect]
     Active Substance: ALBUTEROL SULFATE
     Dosage: UNK UNK, Z (AS REQUIRED)
  25. ALBUTEROL SULFATE [Suspect]
     Active Substance: ALBUTEROL SULFATE
     Dosage: 1 DF, QID
     Route: 055
  26. ALBUTEROL SULFATE [Suspect]
     Active Substance: ALBUTEROL SULFATE
     Dosage: 2 DF
     Route: 055
  27. ALBUTEROL SULFATE [Suspect]
     Active Substance: ALBUTEROL SULFATE
     Dosage: 1 DF EVERY 4 HOURS
     Route: 055
  28. ALBUTEROL SULFATE [Suspect]
     Active Substance: ALBUTEROL SULFATE
     Dosage: 150 MG
     Route: 045
  29. BISACODYL [Suspect]
     Active Substance: BISACODYL
     Indication: Child abuse
     Dosage: 5 MG, QD
     Route: 048
  30. BISACODYL [Suspect]
     Active Substance: BISACODYL
     Dosage: 5 MG, Z
  31. KETOROLAC TROMETHAMINE [Suspect]
     Active Substance: KETOROLAC TROMETHAMINE
     Indication: Pain
     Dosage: 20 MG, QID, 1 EVERY 6 HOURS
     Route: 048
  32. KETOROLAC TROMETHAMINE [Suspect]
     Active Substance: KETOROLAC TROMETHAMINE
     Indication: Child abuse
     Dosage: UNK
  33. LORAZEPAM [Suspect]
     Active Substance: LORAZEPAM
     Indication: Pain management
     Dosage: 0.5 MG, AS REQUIRED
     Route: 060
  34. LORAZEPAM [Suspect]
     Active Substance: LORAZEPAM
     Indication: Seizure
     Dosage: 2 MG, AS REQUIRED
     Route: 060
  35. LORAZEPAM [Suspect]
     Active Substance: LORAZEPAM
     Indication: Muscle spasms
     Dosage: 0.5 MG, QD
     Route: 060
  36. LORAZEPAM [Suspect]
     Active Substance: LORAZEPAM
     Indication: Child abuse
     Dosage: 2 MG, QD
     Route: 060
  37. LORAZEPAM [Suspect]
     Active Substance: LORAZEPAM
     Dosage: UNK
     Route: 065
  38. MONTELUKAST [Suspect]
     Active Substance: MONTELUKAST SODIUM
     Indication: Child abuse
     Dosage: 10 MG, QD
     Route: 048
  39. MONTELUKAST [Suspect]
     Active Substance: MONTELUKAST SODIUM
     Dosage: 10 MG, 1D
     Route: 048
  40. METHADONE [Suspect]
     Active Substance: METHADONE HYDROCHLORIDE
     Indication: Back pain
     Dosage: 2 MG, TID
     Route: 048
  41. METHADONE [Suspect]
     Active Substance: METHADONE HYDROCHLORIDE
     Indication: Child abuse
     Dosage: 0.375 MG, QD
     Route: 048
  42. ARIPIPRAZOLE [Suspect]
     Active Substance: ARIPIPRAZOLE
     Indication: Child abuse
     Dosage: 2 MG, TID, 1 EVERY 8 HOURS
     Route: 048
  43. ARIPIPRAZOLE [Suspect]
     Active Substance: ARIPIPRAZOLE
     Dosage: 2 MG, 1D
     Route: 048
  44. ARIPIPRAZOLE [Suspect]
     Active Substance: ARIPIPRAZOLE
     Dosage: 3 DF, QD
     Route: 048
  45. BACLOFEN [Suspect]
     Active Substance: BACLOFEN
     Indication: Child abuse
     Dosage: 20 MG, TID,1 EVERY 8 HOURS
     Route: 048
  46. CELECOXIB [Suspect]
     Active Substance: CELECOXIB
     Indication: Pain management
     Dosage: 100 MG, BID
     Route: 048
  47. CELECOXIB [Suspect]
     Active Substance: CELECOXIB
     Indication: Child abuse
     Dosage: 100 MG, (1 EVERY 5 DAYS)
     Route: 048
  48. CELECOXIB [Suspect]
     Active Substance: CELECOXIB
     Dosage: 200 MG, QD
  49. CLOBAZAM [Suspect]
     Active Substance: CLOBAZAM
     Indication: Back pain
     Dosage: 20 MG, BID
     Route: 048
  50. CLOBAZAM [Suspect]
     Active Substance: CLOBAZAM
     Indication: Child abuse
     Dosage: 20 MG, 1 EVERY 5 DAYS
     Route: 048
  51. CLOBAZAM [Suspect]
     Active Substance: CLOBAZAM
     Dosage: 40 MG, QD
  52. CLOBAZAM [Suspect]
     Active Substance: CLOBAZAM
     Dosage: 2 DF, QD
     Route: 048
  53. CLONIDINE [Suspect]
     Active Substance: CLONIDINE
     Indication: Child abuse
     Dosage: 0.1 MG, QD
     Route: 048
  54. CLONIDINE [Suspect]
     Active Substance: CLONIDINE
     Dosage: 0.05 MG, QD
     Route: 048
  55. CLONIDINE [Suspect]
     Active Substance: CLONIDINE
     Dosage: 0.5 MG, 1D
     Route: 048
  56. CLONIDINE [Suspect]
     Active Substance: CLONIDINE
     Dosage: 0.1 MG
  57. FISH OIL [Suspect]
     Active Substance: FISH OIL
     Indication: Child abuse
     Dosage: 200 MG, QD
     Route: 048
  58. FISH OIL [Suspect]
     Active Substance: FISH OIL
     Dosage: 400 MG, 1D
     Route: 048
  59. FISH OIL [Suspect]
     Active Substance: FISH OIL
     Dosage: UNK, QD
     Route: 048
  60. FLUOXETINE [Suspect]
     Active Substance: FLUOXETINE HYDROCHLORIDE
     Indication: Child abuse
     Dosage: 20 MG, QD
     Route: 048
  61. FLUTICASONE [Suspect]
     Active Substance: FLUTICASONE
     Indication: Child abuse
     Dosage: 250 UG, QD
     Route: 045
  62. FLUTICASONE [Suspect]
     Active Substance: FLUTICASONE
     Dosage: 2 DF, QD
     Route: 055
  63. GABAPENTIN [Suspect]
     Active Substance: GABAPENTIN
     Indication: Pain management
     Dosage: 600 MG, TID
     Route: 048
  64. GABAPENTIN [Suspect]
     Active Substance: GABAPENTIN
     Indication: Child abuse
     Dosage: 1800 MG, QD
  65. GABAPENTIN [Suspect]
     Active Substance: GABAPENTIN
     Indication: Back pain
     Dosage: 600 MG, BID
     Route: 048
  66. HYDROMORPHONE [Suspect]
     Active Substance: HYDROMORPHONE
     Indication: Pain management
     Dosage: UNK
  67. HYDROMORPHONE [Suspect]
     Active Substance: HYDROMORPHONE
     Indication: Child abuse
  68. HYDROMORPHONE [Suspect]
     Active Substance: HYDROMORPHONE
     Indication: Back pain
  69. LEUPROLIDE ACETATE [Suspect]
     Active Substance: LEUPROLIDE ACETATE
     Indication: Child abuse
     Dosage: 7.5 MG, 1 EVERY 1 MONTH
     Route: 030
  70. MELATONIN [Suspect]
     Active Substance: MELATONIN
     Indication: Sleep deficit
     Dosage: 10 MG, QD
     Route: 048
  71. MELATONIN [Suspect]
     Active Substance: MELATONIN
     Indication: Sleep disorder
     Dosage: UNK
  72. MELATONIN [Suspect]
     Active Substance: MELATONIN
     Indication: Child abuse
  73. PHENOBARBITAL [Suspect]
     Active Substance: PHENOBARBITAL
     Indication: Child abuse
     Dosage: 30 MG, BID
     Route: 048
  74. PHENOBARBITAL [Suspect]
     Active Substance: PHENOBARBITAL
     Dosage: 30 MG, 1 EVERY 5 DAYS
     Route: 048
  75. PHENOBARBITAL [Suspect]
     Active Substance: PHENOBARBITAL
     Dosage: 60 MG, QD
     Route: 048
  76. POLYETHYLENE GLYCOL [Suspect]
     Active Substance: POLYETHYLENE GLYCOL
     Indication: Product used for unknown indication
     Dosage: 30 MG, BID
     Route: 048
  77. FLUOXETINE [Suspect]
     Active Substance: FLUOXETINE HYDROCHLORIDE
     Indication: Product used for unknown indication
     Dosage: 20 MG, QD
     Route: 048
  78. HYDROXYCHLOROQUINE [Suspect]
     Active Substance: HYDROXYCHLOROQUINE
     Indication: Child abuse
     Dosage: 400 MG, QD
     Route: 048
  79. POLYETHYLENE GLYCOL 3350 [Suspect]
     Active Substance: POLYETHYLENE GLYCOL 3350
     Indication: Child abuse
     Dosage: 30 MG, BID
     Route: 048
  80. POLYETHYLENE GLYCOL 3350 [Suspect]
     Active Substance: POLYETHYLENE GLYCOL 3350
     Dosage: 30 MG, (1 EVERY 5 DAYS)
     Route: 048
  81. POLYETHYLENE GLYCOL 3350 [Suspect]
     Active Substance: POLYETHYLENE GLYCOL 3350
     Dosage: 60 MG, QD
  82. ACETAMINOPHEN\METHOCARBAMOL [Suspect]
     Active Substance: ACETAMINOPHEN\METHOCARBAMOL
     Indication: Back pain
     Dosage: 400 MG, BID
     Route: 048
  83. ACETAMINOPHEN\METHOCARBAMOL [Suspect]
     Active Substance: ACETAMINOPHEN\METHOCARBAMOL
     Indication: Child abuse
  84. FISH OIL\OMEGA-3 FATTY ACIDS [Suspect]
     Active Substance: FISH OIL\OMEGA-3 FATTY ACIDS
     Indication: Child abuse
     Dosage: 200 MG, QD
     Route: 048
  85. FISH OIL\OMEGA-3 FATTY ACIDS [Suspect]
     Active Substance: FISH OIL\OMEGA-3 FATTY ACIDS
     Dosage: 400 MG, QD
     Route: 048
  86. VITAMIN C [Suspect]
     Active Substance: ASCORBIC ACID
     Indication: Product used for unknown indication
     Dosage: 1500 MG, 1D
     Route: 048
  87. HYDROXYCHLOROQUINE SULFATE [Suspect]
     Active Substance: HYDROXYCHLOROQUINE SULFATE
     Indication: Child abuse
     Dosage: 400 MG, QD
     Route: 048
  88. LEUPROLIDE ACETATE [Suspect]
     Active Substance: LEUPROLIDE ACETATE
     Indication: Product used for unknown indication
     Dosage: 7.5 MG, QD
     Route: 030
  89. LEUPROLIDE ACETATE [Suspect]
     Active Substance: LEUPROLIDE ACETATE
     Dosage: 7.5 MG, Z, MONTHLY
     Route: 030
  90. ALBUTEROL [Suspect]
     Active Substance: ALBUTEROL
     Indication: Product used for unknown indication
     Dosage: 600 UG, QD
  91. ALBUTEROL [Suspect]
     Active Substance: ALBUTEROL
     Dosage: 100 UG
  92. ALBUTEROL [Suspect]
     Active Substance: ALBUTEROL
     Dosage: 150 MG, 1 EVERY 4 HOURS
     Route: 045
  93. FLUOXETINE HYDROCHLORIDE [Suspect]
     Active Substance: FLUOXETINE HYDROCHLORIDE
     Indication: Product used for unknown indication
     Dosage: 20 MG, QD
     Route: 048
  94. HYDROMORPHONE HYDROCHLORIDE [Suspect]
     Active Substance: HYDROMORPHONE HYDROCHLORIDE
     Indication: Pain management
     Dosage: UNK
  95. ACETAMINOPHEN\METHOCARBAMOL [Suspect]
     Active Substance: ACETAMINOPHEN\METHOCARBAMOL
     Indication: Child abuse
     Dosage: 400 MG, BID
     Route: 048
  96. ACETAMINOPHEN\METHOCARBAMOL [Suspect]
     Active Substance: ACETAMINOPHEN\METHOCARBAMOL
     Dosage: UNK, BID
     Route: 048
  97. ELECTROLYTES NOS\POLYETHYLENE GLYCOLS [Suspect]
     Active Substance: ELECTROLYTES NOS\POLYETHYLENE GLYCOLS
     Indication: Product used for unknown indication
     Dosage: 30 MG, BID, 2 EVERY 1 DAY
     Route: 048
  98. ELIGARD [Suspect]
     Active Substance: LEUPROLIDE ACETATE
     Indication: Product used for unknown indication
     Dosage: 7.5 MG, 1 EVERY 1 MONTH
     Route: 030
  99. VITAMIN D3 [Suspect]
     Active Substance: CHOLECALCIFEROL
     Indication: Product used for unknown indication
     Dosage: 1000 IU
  100. DIPHENHYDRAMINE [Suspect]
     Active Substance: DIPHENHYDRAMINE
     Indication: Child abuse
     Dosage: 12.5 MG, QID, (1 EVERY 6 HOURS)
     Route: 048
  101. DIPHENHYDRAMINE [Suspect]
     Active Substance: DIPHENHYDRAMINE
     Indication: Pruritus
  102. METHADONE HYDROCHLORIDE [Suspect]
     Active Substance: METHADONE HYDROCHLORIDE
     Indication: Back pain
     Dosage: 2 MG, TID
     Route: 048
  103. METHADONE HYDROCHLORIDE [Suspect]
     Active Substance: METHADONE HYDROCHLORIDE
     Indication: Child abuse
  104. RANITIDINE [Suspect]
     Active Substance: RANITIDINE
     Indication: Child abuse
     Dosage: 150 MG, QD
     Route: 048
  105. RANITIDINE [Suspect]
     Active Substance: RANITIDINE
     Dosage: 150 MG, 1D
     Route: 048
  106. ROBAXISAL [Suspect]
     Active Substance: ASPIRIN\METHOCARBAMOL
     Indication: Product used for unknown indication
     Dosage: 400 MG, BID
     Route: 048
  107. ROBAXISAL [Suspect]
     Active Substance: ASPIRIN\METHOCARBAMOL
     Dosage: 500 MG, BID
     Route: 048
  108. DOCONEXENT [Suspect]
     Active Substance: DOCONEXENT
     Indication: Product used for unknown indication
     Dosage: UNK
  109. KETOROLAC [Suspect]
     Active Substance: KETOROLAC TROMETHAMINE
     Indication: Pain
     Dosage: 80 MG, QD
     Route: 048
  110. KETOROLAC [Suspect]
     Active Substance: KETOROLAC TROMETHAMINE
     Dosage: 20 MG, 1EVERY 6 HOURS
     Route: 048
  111. ROBAXACET [Suspect]
     Active Substance: ACETAMINOPHEN\METHOCARBAMOL
     Indication: Back pain
     Dosage: 900 MG, QD
     Route: 048
  112. PANTOPRAZOLE SODIUM [Suspect]
     Active Substance: PANTOPRAZOLE SODIUM
     Indication: Product used for unknown indication
     Dosage: 40 MG, QD
     Route: 048
  113. POLYETHYLENE GLYCOLS [Suspect]
     Active Substance: POLYETHYLENE GLYCOLS
     Indication: Product used for unknown indication
     Dosage: 30 MG, BID
     Route: 048
  114. RANITIDINE HYDROCHLORIDE [Suspect]
     Active Substance: RANITIDINE HYDROCHLORIDE
     Indication: Product used for unknown indication
     Dosage: 150 MG, QD
     Route: 048
  115. TYLENOL [Suspect]
     Active Substance: ACETAMINOPHEN
     Indication: Product used for unknown indication
     Dosage: 400 MG, BID
     Route: 048
  116. POLYETHYLENE GLYCOL 3350\POTASSIUM CHLORIDE\SODIUM BICARBONATE\SODIUM [Suspect]
     Active Substance: POLYETHYLENE GLYCOL 3350\POTASSIUM CHLORIDE\SODIUM BICARBONATE\SODIUM CHLORIDE
     Indication: Product used for unknown indication
     Dosage: 30 MG, BID
     Route: 048

REACTIONS (13)
  - Drug abuse [Recovered/Resolved]
  - Drug dependence [Recovered/Resolved]
  - Respiratory depression [Recovered/Resolved]
  - Child abuse [Recovered/Resolved]
  - Victim of child abuse [Recovered/Resolved]
  - Epidural lipomatosis [Recovered/Resolved]
  - Juvenile idiopathic arthritis [Recovered/Resolved]
  - Obesity [Recovered/Resolved]
  - Drug ineffective [Recovered/Resolved]
  - Product prescribing error [Recovered/Resolved]
  - Intentional product misuse [Unknown]
  - Off label use [Unknown]
  - Product use issue [Unknown]
